FAERS Safety Report 16498407 (Version 3)
Quarter: 2019Q3

REPORT INFORMATION
  Report Type: Report from Study
  Country: None (occurrence: US)
  Receive Date: 20190629
  Receipt Date: 20190926
  Transmission Date: 20191004
  Serious: Yes (Death, Other)
  Sender: FDA-Public Use
  Company Number: US-ABBVIE-19K-163-2833079-00

PATIENT
  Age: 70 Year
  Sex: Male
  Weight: 61.74 kg

DRUGS (2)
  1. VENCLEXTA [Suspect]
     Active Substance: VENETOCLAX
     Indication: PLASMA CELL MYELOMA
     Dosage: FOUR TABLETS PER DAY
     Route: 048
     Dates: start: 201905, end: 201906
  2. VENCLEXTA [Suspect]
     Active Substance: VENETOCLAX
     Indication: ACUTE MYELOID LEUKAEMIA

REACTIONS (7)
  - Loss of consciousness [Recovered/Resolved]
  - Full blood count decreased [Recovered/Resolved]
  - Fall [Unknown]
  - Intentional product use issue [Unknown]
  - Death [Fatal]
  - Skin laceration [Recovered/Resolved]
  - Fatigue [Unknown]

NARRATIVE: CASE EVENT DATE: 2019
